FAERS Safety Report 20529756 (Version 2)
Quarter: 2022Q1

REPORT INFORMATION
  Report Type: Report from Study
  Country: EG (occurrence: EG)
  Receive Date: 20220301
  Receipt Date: 20220304
  Transmission Date: 20220423
  Serious: Yes (Other)
  Sender: FDA-Public Use
  Company Number: EG-NOVARTISPH-NVSC2022EG044431

PATIENT
  Age: 12 Year
  Sex: Male

DRUGS (3)
  1. OMNITROPE [Suspect]
     Active Substance: SOMATROPIN
     Indication: Growth hormone deficiency
     Dosage: 1 MG
     Route: 058
     Dates: start: 20220131
  2. ATOMOXAPEX [Concomitant]
     Indication: Mental disorder
     Dosage: 1 DOSAGE FORM, QD (DAY IN MORNING)
     Route: 065
     Dates: start: 20220217
  3. RISPADEX [Concomitant]
     Indication: Mental disorder
     Dosage: 0.5 UNK, QD (1/2 CM / DAY)
     Route: 065
     Dates: start: 20220217

REACTIONS (4)
  - Epistaxis [Recovered/Resolved]
  - Device issue [Recovered/Resolved]
  - Multiple use of single-use product [Recovered/Resolved]
  - Product dose omission issue [Recovered/Resolved]

NARRATIVE: CASE EVENT DATE: 20220216
